FAERS Safety Report 14190969 (Version 1)
Quarter: 2017Q4

REPORT INFORMATION
  Report Type: Spontaneous
  Country: US (occurrence: US)
  Receive Date: 20171115
  Receipt Date: 20171115
  Transmission Date: 20180321
  Serious: Yes (Hospitalization, Other)
  Sender: FDA-Public Use
  Company Number: US-GLAXOSMITHKLINE-US2017174338

PATIENT
  Age: 59 Year
  Sex: Male

DRUGS (11)
  1. METHADONE [Concomitant]
     Active Substance: METHADONE HYDROCHLORIDE
  2. TRIAMTERENE. [Concomitant]
     Active Substance: TRIAMTERENE
  3. CONSTULOSE [Concomitant]
     Active Substance: LACTULOSE
  4. DEXAMETHASONE. [Concomitant]
     Active Substance: DEXAMETHASONE
  5. ADVAIR DISKUS [Suspect]
     Active Substance: FLUTICASONE PROPIONATE\SALMETEROL XINAFOATE
     Indication: CHRONIC OBSTRUCTIVE PULMONARY DISEASE
     Dosage: 1 PUFF(S), 1D
     Dates: start: 2012
  6. AMLODIPINE [Concomitant]
     Active Substance: AMLODIPINE BESYLATE
  7. OMEPRAZOLE. [Concomitant]
     Active Substance: OMEPRAZOLE
  8. BICALUTAMIDE. [Concomitant]
     Active Substance: BICALUTAMIDE
  9. ROBAXIN [Concomitant]
     Active Substance: METHOCARBAMOL
  10. SENNA [Concomitant]
     Active Substance: SENNA LEAF\SENNOSIDES\SENNOSIDES A AND B
  11. TIZANIDINE. [Concomitant]
     Active Substance: TIZANIDINE

REACTIONS (9)
  - Prostate cancer stage IV [Not Recovered/Not Resolved]
  - Prostate cancer metastatic [Not Recovered/Not Resolved]
  - Muscle spasms [Unknown]
  - Cervical vertebral fracture [Unknown]
  - Neck pain [Unknown]
  - Cough [Unknown]
  - Retching [Unknown]
  - Blood sodium decreased [Not Recovered/Not Resolved]
  - Underdose [Unknown]

NARRATIVE: CASE EVENT DATE: 2016
